FAERS Safety Report 12925048 (Version 1)
Quarter: 2016Q4

REPORT INFORMATION
  Report Type: Spontaneous
  Country: US (occurrence: US)
  Receive Date: 20161109
  Receipt Date: 20161109
  Transmission Date: 20170207
  Serious: No
  Sender: FDA-Public Use
  Company Number: US-ASTRAZENECA-2016SF15041

PATIENT
  Age: 1040 Month
  Sex: Female
  Weight: 95.7 kg

DRUGS (5)
  1. ATIVAN [Concomitant]
     Active Substance: LORAZEPAM
     Indication: ILL-DEFINED DISORDER
     Dosage: AS REQUIRED
     Route: 048
     Dates: start: 2013
  2. TYLENOL [Concomitant]
     Active Substance: ACETAMINOPHEN
     Indication: PAIN IN EXTREMITY
     Route: 048
     Dates: start: 2013
  3. OXYCODONE [Concomitant]
     Active Substance: OXYCODONE
     Indication: PAIN IN EXTREMITY
     Route: 048
     Dates: start: 2013
  4. BLOOD PRESSURE PILL [Concomitant]
     Active Substance: UNSPECIFIED INGREDIENT
     Indication: BLOOD PRESSURE ABNORMAL
     Dosage: UNKNOWN
     Route: 048
  5. SEROQUEL [Suspect]
     Active Substance: QUETIAPINE FUMARATE
     Indication: DEPRESSION
     Route: 048
     Dates: start: 20160822

REACTIONS (3)
  - Circumstance or information capable of leading to medication error [Unknown]
  - Nasal congestion [Unknown]
  - Nasopharyngitis [Unknown]

NARRATIVE: CASE EVENT DATE: 201609
